FAERS Safety Report 8975543 (Version 1)
Quarter: 2012Q4

REPORT INFORMATION
  Report Type: 
  Country: US (occurrence: US)
  Receive Date: 20121219
  Receipt Date: 20121219
  Transmission Date: 20130627
  Serious: No
  Sender: FDA-Public Use
  Company Number: US-PFIZER INC-2012318264

PATIENT
  Age: 62 Year
  Sex: Female
  Weight: 86.17 kg

DRUGS (6)
  1. AZITHROMYCIN [Suspect]
     Indication: PNEUMONIA BACTERIAL NOS
     Dosage: 250 mg, 2x/day
     Dates: start: 20121210, end: 20121210
  2. AZITHROMYCIN [Suspect]
     Indication: BRONCHITIS
     Dosage: 250 mg, daily
  3. AZITHROMYCIN [Suspect]
     Indication: SHAKY FEELINGS
  4. AZITHROMYCIN [Suspect]
     Indication: FEVER
  5. LOSARTAN POTASSIUM [Concomitant]
     Indication: BLOOD PRESSURE HIGH
     Dosage: 100 mg, daily
  6. VERAPAMIL [Concomitant]
     Indication: BLOOD PRESSURE HIGH
     Dosage: 340 mg, daily

REACTIONS (1)
  - Drug ineffective [Unknown]
